FAERS Safety Report 8096738-8 (Version None)
Quarter: 2012Q1

REPORT INFORMATION
  Report Type: 
  Country: None (occurrence: None)
  Receive Date: 20120129
  Receipt Date: 20111121
  Transmission Date: 20120608
  Serious: No
  Sender: FDA-Public Use
  Company Number: US-ABBOTT-11P-163-0856087-00

PATIENT
  Sex: Female
  Weight: 74.91 kg

DRUGS (4)
  1. NEURONTIN [Concomitant]
     Indication: PRODUCT USED FOR UNKNOWN INDICATION
     Dosage: NOT REPORTED
  2. METHOTREXATE [Concomitant]
     Indication: RHEUMATOID ARTHRITIS
     Dosage: NOT REPORTED
     Dates: end: 20111001
  3. MYCOPHENOLATE MOFETIL (CELLCEPT) [Concomitant]
     Indication: VASCULITIS
     Dosage: NOT REPORTED
     Dates: end: 20111001
  4. HUMIRA [Suspect]
     Indication: RHEUMATOID ARTHRITIS
     Dates: start: 20110802

REACTIONS (12)
  - JOINT SWELLING [None]
  - OEDEMA PERIPHERAL [None]
  - PRURITUS [None]
  - PAIN IN EXTREMITY [None]
  - INJECTION SITE PAIN [None]
  - BURNING SENSATION [None]
  - JOINT STIFFNESS [None]
  - RHEUMATOID ARTHRITIS [None]
  - BLISTER [None]
  - ARTHRALGIA [None]
  - VASCULITIS [None]
  - ADVERSE DRUG REACTION [None]
